FAERS Safety Report 6286502-4 (Version None)
Quarter: 2009Q3

REPORT INFORMATION
  Report Type: 
  Country: None (occurrence: None)
  Receive Date: 20090727
  Receipt Date: 20090727
  Transmission Date: 20100115
  Serious: No
  Sender: FDA-Public Use
  Company Number: None

PATIENT
  Sex: Male
  Weight: 79.3795 kg

DRUGS (1)
  1. ELECTRONIC CIGARETTE NONE.. IT'S JUST TOO MANY TO LIST A DEVICE [Suspect]
     Dosage: AS STRONG OR WEAK AS I WANT WHENEVER I WANT PO
     Route: 048
     Dates: start: 20090208, end: 20090722

REACTIONS (1)
  - NO ADVERSE EVENT [None]
